FAERS Safety Report 11744529 (Version 1)
Quarter: 2015Q4

REPORT INFORMATION
  Report Type: Spontaneous
  Country: US (occurrence: US)
  Receive Date: 20151116
  Receipt Date: 20151116
  Transmission Date: 20160304
  Serious: Yes (Other)
  Sender: FDA-Public Use
  Company Number: US-TAKEDA-2015TUS015918

PATIENT
  Sex: Male

DRUGS (2)
  1. 5-ASA [Concomitant]
     Active Substance: MESALAMINE
  2. ENTYVIO [Suspect]
     Active Substance: VEDOLIZUMAB
     Indication: COLITIS ULCERATIVE
     Dosage: 300 MG, UNK
     Route: 042
     Dates: start: 201505

REACTIONS (1)
  - Pneumonitis [Not Recovered/Not Resolved]
